FAERS Safety Report 9431915 (Version 1)
Quarter: 2013Q3

REPORT INFORMATION
  Report Type: Spontaneous
  Country: US (occurrence: None)
  Receive Date: 20130726
  Receipt Date: 20130726
  Transmission Date: 20140515
  Serious: Yes (Hospitalization)
  Sender: FDA-Public Use
  Company Number: PRED20130047

PATIENT
  Age: 61 Year
  Sex: Male

DRUGS (5)
  1. PREDNISONE [Suspect]
     Indication: IMMUNOSUPPRESSANT DRUG THERAPY
     Route: 048
  2. TACROLIMUS [Suspect]
     Indication: IMMUNOSUPPRESSANT DRUG THERAPY
     Dosage: 2 IN 1 D
     Route: 048
  3. POSACONAZOLE (POSACONAZOLE) (UNKNOWN) (POSACONAZOLE) [Concomitant]
  4. VALGANCICLOVIR (VALGANCICLOVIR) (UNKNOWN) (VALGANCICLOVIR) [Concomitant]
  5. PENTAMIDINE (PENTAMIDINE) (SOLUTION) (PENTAMIDINE) [Concomitant]

REACTIONS (9)
  - Lung transplant rejection [None]
  - Pancytopenia [None]
  - Pneumonia [None]
  - Acinetobacter infection [None]
  - Pneumonia pseudomonal [None]
  - Mycobacterium chelonae infection [None]
  - Bacteraemia [None]
  - Hypoxia [None]
  - Pneumonia bacterial [None]
